FAERS Safety Report 6832817-8 (Version None)
Quarter: 2010Q3

REPORT INFORMATION
  Report Type: 
  Country: None (occurrence: None)
  Receive Date: 20100712
  Receipt Date: 20070322
  Transmission Date: 20110219
  Serious: Yes (Other)
  Sender: FDA-Public Use
  Company Number: US-PFIZER INC-2007023780

PATIENT
  Age: 50 Year
  Sex: Female
  Weight: 117.9 kg

DRUGS (4)
  1. CHANTIX [Suspect]
     Indication: EX-TOBACCO USER
     Route: 048
     Dates: start: 20070306
  2. TOPROL-XL [Concomitant]
     Route: 048
  3. XANAX [Concomitant]
     Route: 048
  4. LEXAPRO [Concomitant]
     Route: 048

REACTIONS (4)
  - ABNORMAL DREAMS [None]
  - BLOOD PRESSURE INCREASED [None]
  - HEART RATE DECREASED [None]
  - SLEEP DISORDER [None]
